FAERS Safety Report 6382860-0 (Version None)
Quarter: 2009Q3

REPORT INFORMATION
  Report Type: 
  Country: None (occurrence: None)
  Receive Date: 20090930
  Receipt Date: 20090929
  Transmission Date: 20100115
  Serious: Yes (Hospitalization)
  Sender: FDA-Public Use
  Company Number: NZ-NAPPMUNDI-USA-2009-0039973

PATIENT
  Age: 20 Year
  Sex: Female

DRUGS (3)
  1. OXYCONTIN [Suspect]
     Indication: DRUG USE FOR UNKNOWN INDICATION
     Dosage: 60 MG, UNK
  2. OXYCODONE HCL [Suspect]
     Indication: ANALGESIA
     Dosage: 5 MG, PRN
  3. LAXATIVES [Concomitant]

REACTIONS (6)
  - CONSTIPATION [None]
  - DEHYDRATION [None]
  - HYPOPHAGIA [None]
  - INADEQUATE ANALGESIA [None]
  - NAUSEA [None]
  - VOMITING [None]
